FAERS Safety Report 10908116 (Version 1)
Quarter: 2015Q1

REPORT INFORMATION
  Report Type: Spontaneous
  Country: US (occurrence: US)
  Receive Date: 20150312
  Receipt Date: 20150312
  Transmission Date: 20150721
  Serious: No
  Sender: FDA-Public Use
  Company Number: US-INCYTE CORPORATION-2015IN000161

PATIENT
  Age: 54 Year
  Sex: Female

DRUGS (3)
  1. JAKAFI [Suspect]
     Active Substance: RUXOLITINIB
     Indication: MYELOFIBROSIS
     Dosage: 15 MG, BID
     Route: 048
     Dates: start: 20141110, end: 201502
  2. ASPIRIN. [Concomitant]
     Active Substance: ASPIRIN
  3. MULTIVITAMIN                       /07504101/ [Concomitant]
     Active Substance: VITAMINS

REACTIONS (5)
  - Drug ineffective [Not Recovered/Not Resolved]
  - Bone pain [Unknown]
  - Splenomegaly [Unknown]
  - Musculoskeletal pain [Unknown]
  - Headache [Unknown]

NARRATIVE: CASE EVENT DATE: 201412
